FAERS Safety Report 5396415-8 (Version None)
Quarter: 2007Q3

REPORT INFORMATION
  Report Type: 
  Country: None (occurrence: None)
  Receive Date: 20070725
  Receipt Date: 20070716
  Transmission Date: 20080115
  Serious: Yes (Death)
  Sender: FDA-Public Use
  Company Number: IT-MINISAL02-75346

PATIENT
  Sex: Female

DRUGS (1)
  1. MULTIHANCE [Suspect]
     Route: 042
     Dates: start: 20070711, end: 20070711

REACTIONS (2)
  - CYANOSIS [None]
  - RESPIRATORY FAILURE [None]
